FAERS Safety Report 6441067-9 (Version None)
Quarter: 2009Q4

REPORT INFORMATION
  Report Type: 
  Country: None (occurrence: None)
  Receive Date: 20091116
  Receipt Date: 20091109
  Transmission Date: 20100525
  Serious: Yes (Other)
  Sender: FDA-Public Use
  Company Number: US-ROCHE-667525

PATIENT
  Age: 17 Year
  Sex: Female

DRUGS (3)
  1. DACLIZUMAB [Suspect]
     Dosage: ADMINISTERED AT BASELINE; FORM INFUSION
     Route: 042
  2. DACLIZUMAB [Suspect]
     Dosage: ADMINISTERED AT WEEK 2 AS INDUCTION
     Route: 042
  3. DACLIZUMAB [Suspect]
     Dosage: ADMINISTERED AT WEEK 4
     Route: 042

REACTIONS (2)
  - HERPES ZOSTER [None]
  - PALPITATIONS [None]
